FAERS Safety Report 5738166-3 (Version None)
Quarter: 2008Q2

REPORT INFORMATION
  Report Type: 
  Country: None (occurrence: None)
  Receive Date: 20080514
  Receipt Date: 20080507
  Transmission Date: 20081010
  Serious: Yes (Death, Other)
  Sender: FDA-Public Use
  Company Number: PFIZER INC-2006091126

PATIENT
  Sex: Female
  Weight: 94 kg

DRUGS (1)
  1. BEXTRA [Suspect]
     Indication: PAIN
     Route: 048

REACTIONS (1)
  - MYOCARDIAL INFARCTION [None]
